FAERS Safety Report 16491398 (Version 1)
Quarter: 2019Q2

REPORT INFORMATION
  Report Type: Spontaneous
  Country: GB (occurrence: GB)
  Receive Date: 20190628
  Receipt Date: 20190628
  Transmission Date: 20190711
  Serious: Yes (Other)
  Sender: FDA-Public Use
  Company Number: GB-TEVA-2019-GB-1070187

PATIENT
  Age: 86 Year
  Sex: Female
  Weight: 65 kg

DRUGS (4)
  1. CO-AMILOZIDE [Suspect]
     Active Substance: AMILORIDE HYDROCHLORIDE\HYDROCHLOROTHIAZIDE
     Dosage: 1 DOSAGE FORMS DAILY; 5MG/50MG. MORNING.
     Route: 065
     Dates: start: 20160414, end: 20190524
  2. ADCAL [Concomitant]
     Dosage: 2 DOSAGE FORMS DAILY;
     Dates: start: 20180705
  3. HYDROXOCOBALAMIN [Concomitant]
     Active Substance: HYDROXOCOBALAMIN
     Dosage: USE AS DIRECTED.
     Dates: start: 20180306
  4. AMLODIPINE [Concomitant]
     Active Substance: AMLODIPINE BESYLATE
     Dosage: 1 DOSAGE FORMS DAILY;
     Dates: start: 20130703

REACTIONS (1)
  - Squamous cell carcinoma [Recovered/Resolved]

NARRATIVE: CASE EVENT DATE: 20190524
